FAERS Safety Report 7301479-8 (Version None)
Quarter: 2011Q1

REPORT INFORMATION
  Report Type: 
  Country: None (occurrence: None)
  Receive Date: 20110218
  Receipt Date: 20110211
  Transmission Date: 20110831
  Serious: Yes (Other)
  Sender: FDA-Public Use
  Company Number: US-US-EMD SERONO, INC.-7004189

PATIENT
  Sex: Female
  Weight: 86 kg

DRUGS (2)
  1. REBIF [Suspect]
     Indication: MULTIPLE SCLEROSIS
     Route: 058
     Dates: start: 20091027, end: 20100128
  2. REBIF [Suspect]
     Route: 058
     Dates: start: 20100211

REACTIONS (9)
  - CHOLELITHIASIS [None]
  - HOT FLUSH [None]
  - INFLUENZA LIKE ILLNESS [None]
  - INCISION SITE INFECTION [None]
  - ABDOMINAL DISTENSION [None]
  - GASTROOESOPHAGEAL REFLUX DISEASE [None]
  - FLATULENCE [None]
  - INJECTION SITE PAIN [None]
  - FATIGUE [None]
